FAERS Safety Report 5880374-5 (Version None)
Quarter: 2008Q3

REPORT INFORMATION
  Report Type: 
  Country: None (occurrence: None)
  Receive Date: 20080912
  Receipt Date: 20080730
  Transmission Date: 20090109
  Serious: No
  Sender: FDA-Public Use
  Company Number: US-ABBOTT-07P-163-0368169-00

PATIENT
  Sex: Female
  Weight: 52.21 kg

DRUGS (17)
  1. HUMIRA [Suspect]
     Indication: PSORIATIC ARTHROPATHY
     Route: 058
     Dates: start: 20060829, end: 20070401
  2. HUMIRA [Suspect]
     Route: 058
     Dates: start: 20080401
  3. ALPRAZOLAM [Concomitant]
     Indication: DRUG USE FOR UNKNOWN INDICATION
     Route: 048
     Dates: start: 19980101
  4. BUSPIRONE HYDROCHLORIDE [Concomitant]
     Indication: DRUG USE FOR UNKNOWN INDICATION
     Dosage: 15 MG TAB- 1/2 TAB BID
     Route: 048
     Dates: start: 19980101
  5. GABAPENTIN [Concomitant]
     Indication: DRUG USE FOR UNKNOWN INDICATION
     Route: 048
     Dates: start: 19970101
  6. CLONIDINE [Concomitant]
     Indication: HYPERTENSION
     Route: 061
     Dates: start: 19970101
  7. DEXTROPROPOXYPHENE [Concomitant]
     Indication: PAIN
     Route: 048
     Dates: start: 19970101
  8. METOPROLOL TARTRATE [Concomitant]
     Indication: HYPERTENSION
     Route: 048
     Dates: start: 20030101
  9. NAPROXEN SODIUM [Concomitant]
     Indication: DRUG USE FOR UNKNOWN INDICATION
     Route: 048
     Dates: start: 19970101
  10. FEXOFENADINE [Concomitant]
     Indication: ALLERGIC SINUSITIS
     Route: 048
     Dates: start: 20050101
  11. EUGYNON [Concomitant]
     Indication: ORAL CONTRACEPTION
     Route: 048
     Dates: start: 19880101
  12. FLUTICASONE PROPIONATE [Concomitant]
     Indication: ALLERGIC SINUSITIS
     Route: 045
     Dates: start: 20050101
  13. FOLIC ACID [Concomitant]
     Indication: VITAMIN SUPPLEMENTATION
     Route: 048
     Dates: start: 20050101
  14. ZOLPIDEM TARTRATE [Concomitant]
     Indication: INSOMNIA
     Route: 048
     Dates: start: 20070101
  15. ELAVIL CREAM [Concomitant]
     Indication: PSORIASIS
     Route: 061
     Dates: start: 19880101
  16. DONAVEX [Concomitant]
     Indication: PSORIASIS
     Route: 061
     Dates: start: 19880101
  17. METHOTREXATE [Concomitant]
     Indication: PSORIATIC ARTHROPATHY
     Route: 050
     Dates: start: 20050101

REACTIONS (13)
  - DRUG INEFFECTIVE [None]
  - ERYTHEMA [None]
  - HEADACHE [None]
  - HEPATIC ENZYME INCREASED [None]
  - HYPOAESTHESIA [None]
  - INJECTION SITE REACTION [None]
  - JOINT SWELLING [None]
  - LYMPHOEDEMA [None]
  - NAUSEA [None]
  - OEDEMA PERIPHERAL [None]
  - PAIN [None]
  - PARAESTHESIA [None]
  - PSORIASIS [None]
